FAERS Safety Report 12342496 (Version 2)
Quarter: 2016Q2

REPORT INFORMATION
  Report Type: Spontaneous
  Country: US (occurrence: US)
  Receive Date: 20160506
  Receipt Date: 20160510
  Transmission Date: 20160815
  Serious: No
  Sender: FDA-Public Use
  Company Number: US-TEVA-657446USA

PATIENT
  Age: 34 Year
  Sex: Male
  Weight: 65.83 kg

DRUGS (3)
  1. FENTORA [Suspect]
     Active Substance: FENTANYL CITRATE
     Indication: PAIN
     Route: 065
  2. FENTORA [Suspect]
     Active Substance: FENTANYL CITRATE
     Indication: SCOLIOSIS
  3. FENTORA [Suspect]
     Active Substance: FENTANYL CITRATE
     Indication: NERVE INJURY

REACTIONS (3)
  - Pain [Unknown]
  - Intentional product use issue [Unknown]
  - Ligament sprain [Not Recovered/Not Resolved]

NARRATIVE: CASE EVENT DATE: 20160501
